FAERS Safety Report 9645865 (Version 1)
Quarter: 2013Q4

REPORT INFORMATION
  Report Type: Spontaneous
  Country: US (occurrence: None)
  Receive Date: 20131024
  Receipt Date: 20131024
  Transmission Date: 20140711
  Serious: Yes (Hospitalization)
  Sender: FDA-Public Use
  Company Number: None

PATIENT
  Age: 39 Year
  Sex: Male
  Weight: 72.8 kg

DRUGS (3)
  1. CARBOPLATIN [Suspect]
     Indication: OESOPHAGEAL CARCINOMA
     Dosage: AUC 5
     Dates: start: 20130411, end: 20130507
  2. PACLITAXEL [Suspect]
     Indication: OESOPHAGEAL CARCINOMA
     Dosage: 175MG/M2   Q21DAYS
     Dates: start: 20130411, end: 20130507
  3. RIDAFOROLIMUS [Suspect]
     Indication: OESOPHAGEAL CARCINOMA
     Dosage: 30MG  PO  DAY 1-5 AND 8-12
     Route: 048
     Dates: start: 20130412, end: 20130514

REACTIONS (7)
  - Cellulitis [None]
  - Folliculitis [None]
  - Night sweats [None]
  - Gastrooesophageal reflux disease [None]
  - Nausea [None]
  - Chills [None]
  - Neutropenia [None]
